FAERS Safety Report 5496136-7 (Version None)
Quarter: 2007Q4

REPORT INFORMATION
  Report Type: 
  Country: None (occurrence: None)
  Receive Date: 20071025
  Receipt Date: 20071015
  Transmission Date: 20080405
  Serious: Yes (Life-Threatening)
  Sender: FDA-Public Use
  Company Number: GB-AMGEN-US248572

PATIENT
  Age: 61 Year
  Sex: Female

DRUGS (12)
  1. ENBREL [Suspect]
     Indication: PSORIATIC ARTHROPATHY
     Route: 058
     Dates: start: 20040301, end: 20070901
  2. ENBREL [Suspect]
     Indication: POLYMYALGIA RHEUMATICA
  3. METHOTREXATE [Suspect]
     Indication: MYALGIA
     Route: 048
     Dates: start: 20030101, end: 20070901
  4. METHOTREXATE [Suspect]
     Indication: PSORIATIC ARTHROPATHY
  5. AMITRIPTYLINE HCL [Concomitant]
     Dosage: 40MG, FREQUENCY NOT STATED
     Route: 048
  6. CALCICHEW [Concomitant]
  7. PANTOPRAZOLE SODIUM [Concomitant]
     Dosage: UNKNOWN
  8. DICLOFENAC [Concomitant]
     Route: 048
  9. FOLIC ACID [Concomitant]
     Route: 048
     Dates: start: 20030101
  10. METOCLOPRAMIDE [Concomitant]
     Route: 048
  11. OXYCODONE HCL [Concomitant]
     Dosage: UNKNOWN
     Route: 048
  12. DETRUSITOL [Concomitant]
     Dosage: UNKNOWN

REACTIONS (1)
  - ALVEOLITIS FIBROSING [None]
